FAERS Safety Report 20820179 (Version 8)
Quarter: 2024Q3

REPORT INFORMATION
  Report Type: Report from Study
  Country: AU (occurrence: AU)
  Receive Date: 20220512
  Receipt Date: 20240703
  Transmission Date: 20241017
  Serious: Yes (Other)
  Sender: TAKEDA
  Company Number: AU-TAKEDA-2021TUS014962

PATIENT
  Age: 41 Year
  Sex: Female

DRUGS (7)
  1. VEDOLIZUMAB [Suspect]
     Active Substance: VEDOLIZUMAB
     Indication: Colitis ulcerative
     Dosage: 300 MILLIGRAM
     Route: 042
     Dates: end: 202203
  2. VEDOLIZUMAB [Suspect]
     Active Substance: VEDOLIZUMAB
     Dosage: 300 MILLIGRAM
     Route: 042
     Dates: start: 20221101
  3. VEDOLIZUMAB [Suspect]
     Active Substance: VEDOLIZUMAB
     Dosage: 300 MILLIGRAM, Q4WEEKS
     Route: 042
  4. VEDOLIZUMAB [Suspect]
     Active Substance: VEDOLIZUMAB
     Dosage: 300 MILLIGRAM, Q4WEEKS
     Route: 042
  5. PANTOPRAZOLE [Concomitant]
     Active Substance: PANTOPRAZOLE
     Indication: Gastrooesophageal reflux disease
     Dosage: 40 MILLIGRAM, QD
  6. IMURAN [Concomitant]
     Active Substance: AZATHIOPRINE
     Dosage: 50 MILLIGRAM, BID
  7. ESTRADIOL\NOMEGESTROL ACETATE [Concomitant]
     Active Substance: ESTRADIOL\NOMEGESTROL ACETATE
     Dosage: UNK, QD

REACTIONS (10)
  - Abortion spontaneous [Unknown]
  - Colitis ulcerative [Not Recovered/Not Resolved]
  - Dry mouth [Unknown]
  - COVID-19 [Unknown]
  - Loss of therapeutic response [Unknown]
  - Pregnancy [Recovered/Resolved]
  - Inappropriate schedule of product administration [Recovered/Resolved]
  - Stress [Unknown]
  - Poor venous access [Recovered/Resolved]
  - Arthralgia [Unknown]

NARRATIVE: CASE EVENT DATE: 20231219
